FAERS Safety Report 6128294-5 (Version None)
Quarter: 2009Q1

REPORT INFORMATION
  Report Type: 
  Country: None (occurrence: None)
  Receive Date: 20090323
  Receipt Date: 20090316
  Transmission Date: 20090719
  Serious: Yes (Hospitalization)
  Sender: FDA-Public Use
  Company Number: A0747124A

PATIENT
  Age: 36 Year
  Sex: Male
  Weight: 113.6 kg

DRUGS (4)
  1. AVANDIA [Suspect]
     Dates: start: 20000129, end: 20070123
  2. PRILOSEC [Concomitant]
  3. ALLEGRA [Concomitant]
  4. GLUCOPHAGE [Concomitant]

REACTIONS (3)
  - CARDIAC FAILURE CONGESTIVE [None]
  - CEREBROVASCULAR ACCIDENT [None]
  - MYOCARDIAL INFARCTION [None]
